FAERS Safety Report 10332270 (Version 2)
Quarter: 2014Q3

REPORT INFORMATION
  Report Type: Spontaneous
  Country: IT (occurrence: IT)
  Receive Date: 20140722
  Receipt Date: 20140904
  Transmission Date: 20150326
  Serious: Yes (Other)
  Sender: FDA-Public Use
  Company Number: IT-TEVA-494416ISR

PATIENT
  Age: 51 Year
  Sex: Male
  Weight: 77 kg

DRUGS (6)
  1. RIBAVIRIN. [Suspect]
     Active Substance: RIBAVIRIN
     Indication: CHRONIC HEPATITIS C
     Dosage: 600 MILLIGRAM DAILY; 600 MG DAILY
     Route: 048
     Dates: start: 20140513, end: 20140521
  2. PEGASYS [Interacting]
     Active Substance: PEGINTERFERON ALFA-2A
     Indication: CHRONIC HEPATITIS C
     Dosage: 180 UG WEEKLY
     Route: 030
     Dates: start: 20140130, end: 20140522
  3. RIBAVIRIN. [Interacting]
     Active Substance: RIBAVIRIN
     Dosage: 1000 MILLIGRAM DAILY; 1000 MG DAILY
     Route: 048
     Dates: start: 20140130, end: 20140406
  4. RIBAVIRIN. [Interacting]
     Active Substance: RIBAVIRIN
     Dosage: 800 MILLIGRAM DAILY; 800 MG DAILY
     Route: 048
     Dates: start: 20140407, end: 20140512
  5. TRIATEC [Concomitant]
     Active Substance: RAMIPRIL
     Dosage: 2.5 MILLIGRAM DAILY;
  6. TELAPREVIR [Interacting]
     Active Substance: TELAPREVIR
     Indication: CHRONIC HEPATITIS C
     Dosage: 2250 MILLIGRAM DAILY;
     Route: 048
     Dates: start: 20140307, end: 20140517

REACTIONS (2)
  - Rash maculo-papular [Recovering/Resolving]
  - Drug interaction [Unknown]

NARRATIVE: CASE EVENT DATE: 20140513
